FAERS Safety Report 10929126 (Version 1)
Quarter: 2015Q1

REPORT INFORMATION
  Report Type: Spontaneous
  Country: US (occurrence: None)
  Receive Date: 20150318
  Receipt Date: 20150318
  Transmission Date: 20150721
  Serious: Yes (Other)
  Sender: FDA-Public Use
  Company Number: None

PATIENT
  Age: 47 Year
  Sex: Female
  Weight: 70.31 kg

DRUGS (17)
  1. BACLOFEN. [Concomitant]
     Active Substance: BACLOFEN
  2. ALIVE WOMENS MULTI [Concomitant]
  3. L-TYROSINE [Concomitant]
  4. MECLIZINE [Concomitant]
     Active Substance: MECLIZINE\MECLIZINE HYDROCHLORIDE
  5. ESTRACE [Concomitant]
     Active Substance: ESTRADIOL
  6. CAL/MAG [Concomitant]
  7. MINIVELLE [Suspect]
     Active Substance: ESTRADIOL
     Indication: HORMONE REPLACEMENT THERAPY
     Dosage: 8 SYSTEMS 2 PATCHES WEEK --
     Dates: start: 20150101, end: 20150317
  8. IODINE [Concomitant]
     Active Substance: IODINE
  9. NORCO [Concomitant]
     Active Substance: ACETAMINOPHEN\HYDROCODONE BITARTRATE
  10. ALBUTEROL. [Concomitant]
     Active Substance: ALBUTEROL
  11. ARMOUR THYROID [Concomitant]
     Active Substance: THYROID, PORCINE\THYROID, UNSPECIFIED
  12. VIT. D [Concomitant]
  13. MINIVELLE [Suspect]
     Active Substance: ESTRADIOL
     Indication: HOT FLUSH
     Dosage: 8 SYSTEMS 2 PATCHES WEEK --
     Dates: start: 20150101, end: 20150317
  14. RAW THYROID [Concomitant]
  15. MINIVELLE [Concomitant]
     Active Substance: ESTRADIOL
  16. GINGER. [Concomitant]
     Active Substance: GINGER
  17. IRON [Concomitant]
     Active Substance: IRON

REACTIONS (7)
  - Product quality issue [None]
  - Insomnia [None]
  - Drug ineffective [None]
  - Product substitution issue [None]
  - Product adhesion issue [None]
  - Dermatitis contact [None]
  - Hot flush [None]

NARRATIVE: CASE EVENT DATE: 20150101
